FAERS Safety Report 14834491 (Version 1)
Quarter: 2018Q2

REPORT INFORMATION
  Report Type: Spontaneous
  Country: US (occurrence: US)
  Receive Date: 20180501
  Receipt Date: 20180501
  Transmission Date: 20180711
  Serious: No
  Sender: FDA-Public Use
  Company Number: US-PERRIGO-17US031433

PATIENT
  Age: 63 Year
  Sex: Female
  Weight: 89.8 kg

DRUGS (1)
  1. TRIAMCINOLONE ACETONIDE. [Suspect]
     Active Substance: TRIAMCINOLONE ACETONIDE
     Indication: WRONG DRUG ADMINISTERED
     Dosage: 1 APPLICATORFUL, SINGLE
     Route: 067
     Dates: start: 201706, end: 201706

REACTIONS (1)
  - Wrong drug administered [Recovered/Resolved]

NARRATIVE: CASE EVENT DATE: 201706
